FAERS Safety Report 7122061-1 (Version None)
Quarter: 2010Q4

REPORT INFORMATION
  Report Type: 
  Country: None (occurrence: None)
  Receive Date: 20101124
  Receipt Date: 20101115
  Transmission Date: 20110411
  Serious: Yes (Congenital Anomaly, Other)
  Sender: FDA-Public Use
  Company Number: B0685678A

PATIENT
  Sex: Male
  Weight: 2.96 kg

DRUGS (2)
  1. LAMOTRIGINE [Suspect]
     Indication: EPILEPSY
     Dosage: 50MG PER DAY
  2. TOPAMAX [Suspect]
     Indication: EPILEPSY
     Dosage: 350MG PER DAY

REACTIONS (3)
  - CONGENITAL NOSE MALFORMATION [None]
  - PLAGIOCEPHALY [None]
  - TALIPES [None]
